APPROVED DRUG PRODUCT: PAMIDRONATE DISODIUM
Active Ingredient: PAMIDRONATE DISODIUM
Strength: 30MG/10ML (3MG/ML)
Dosage Form/Route: INJECTABLE;INJECTION
Application: N021113 | Product #001 | TE Code: AP1
Applicant: HIKMA PHARMACEUTICALS USA INC
Approved: Mar 4, 2002 | RLD: Yes | RS: Yes | Type: RX